FAERS Safety Report 10545242 (Version 2)
Quarter: 2014Q4

REPORT INFORMATION
  Report Type: Spontaneous
  Country: US (occurrence: US)
  Receive Date: 20141027
  Receipt Date: 20141107
  Transmission Date: 20150529
  Serious: Yes (Death, Hospitalization)
  Sender: FDA-Public Use
  Company Number: US-BAYER-2014-154555

PATIENT
  Age: 62 Year
  Sex: Female

DRUGS (9)
  1. ESOMEPRAZOLE [Suspect]
     Active Substance: ESOMEPRAZOLE
  2. FUROSEMIDE. [Concomitant]
     Active Substance: FUROSEMIDE
  3. ACETYLSALICYLIC ACID({=100 MG) [Suspect]
     Active Substance: ASPIRIN
  4. SOLU-MEDROL [Concomitant]
     Active Substance: METHYLPREDNISOLONE SODIUM SUCCINATE
  5. METOLAZONE. [Concomitant]
     Active Substance: METOLAZONE
  6. GLIPIZIDE. [Concomitant]
     Active Substance: GLIPIZIDE
  7. INSULIN [Concomitant]
     Active Substance: INSULIN NOS
  8. METHOTREXATE [Suspect]
     Active Substance: METHOTREXATE
     Dosage: 12.5 MG, OW
  9. IBUPROFEN. [Suspect]
     Active Substance: IBUPROFEN

REACTIONS (6)
  - Skin erosion [Fatal]
  - Bone marrow failure [Fatal]
  - Respiratory failure [Fatal]
  - Renal tubular necrosis [Fatal]
  - Psoriasis [Fatal]
  - Labelled drug-drug interaction medication error [Fatal]
